FAERS Safety Report 15122254 (Version 2)
Quarter: 2018Q3

REPORT INFORMATION
  Report Type: Spontaneous
  Country: US (occurrence: US)
  Receive Date: 20180709
  Receipt Date: 20180716
  Transmission Date: 20181010
  Serious: No
  Sender: FDA-Public Use
  Company Number: US-TEVA-2018-US-922797

PATIENT
  Sex: Female

DRUGS (1)
  1. POTASSIUM CHLORIDE. [Suspect]
     Active Substance: POTASSIUM CHLORIDE

REACTIONS (3)
  - Product physical issue [Unknown]
  - Sensory disturbance [Unknown]
  - Fatigue [Unknown]
